FAERS Safety Report 18088689 (Version 3)
Quarter: 2020Q3

REPORT INFORMATION
  Report Type: Spontaneous
  Country: US (occurrence: US)
  Receive Date: 20200729
  Receipt Date: 20200929
  Transmission Date: 20201103
  Serious: No
  Sender: FDA-Public Use
  Company Number: US-PFIZER INC-2020287027

PATIENT
  Age: 54 Year
  Sex: Female

DRUGS (1)
  1. XELJANZ [Suspect]
     Active Substance: TOFACITINIB CITRATE
     Indication: RHEUMATOID ARTHRITIS
     Dosage: 5 MG, 2X/DAY

REACTIONS (6)
  - Abdominal discomfort [Unknown]
  - Gastrointestinal disorder [Unknown]
  - Overweight [Unknown]
  - Therapeutic product effect incomplete [Unknown]
  - Gastrointestinal pain [Unknown]
  - Fluid retention [Unknown]
